FAERS Safety Report 11146396 (Version 1)
Quarter: 2015Q2

REPORT INFORMATION
  Report Type: Spontaneous
  Country: US (occurrence: None)
  Receive Date: 20150527
  Receipt Date: 20150527
  Transmission Date: 20150821
  Serious: No
  Sender: FDA-Public Use
  Company Number: None

PATIENT
  Age: 38 Year
  Sex: Female
  Weight: 56.7 kg

DRUGS (7)
  1. AMPYRA [Concomitant]
     Active Substance: DALFAMPRIDINE
  2. VITAMIN D [Concomitant]
     Active Substance: CHOLECALCIFEROL
  3. XANAX [Concomitant]
     Active Substance: ALPRAZOLAM
  4. CYMBALTA [Concomitant]
     Active Substance: DULOXETINE HYDROCHLORIDE
  5. MODAFINIL. [Concomitant]
     Active Substance: MODAFINIL
  6. TECFIDERA [Suspect]
     Active Substance: DIMETHYL FUMARATE
     Indication: PRODUCT USED FOR UNKNOWN INDICATION
     Route: 048
  7. TYZANADINE [Concomitant]

REACTIONS (1)
  - Body temperature decreased [None]

NARRATIVE: CASE EVENT DATE: 20150301
